FAERS Safety Report 7373895-X (Version None)
Quarter: 2011Q1

REPORT INFORMATION
  Report Type: 
  Country: None (occurrence: None)
  Receive Date: 20110325
  Receipt Date: 20110225
  Transmission Date: 20110831
  Serious: No
  Sender: FDA-Public Use
  Company Number: US-B.I. PHARMACEUTICALS,INC./RIDGEFIELD-2011-BP-06870BP

PATIENT
  Sex: Female

DRUGS (5)
  1. PRADAXA [Suspect]
     Indication: ATRIAL FIBRILLATION
     Dosage: 300 MG
     Route: 048
     Dates: start: 20110217
  2. MULTAQ [Concomitant]
     Indication: ATRIAL FIBRILLATION
     Route: 048
     Dates: start: 20100217
  3. CARDIZEM [Concomitant]
     Indication: ATRIAL FIBRILLATION
     Dates: start: 20101101
  4. PLAVIX [Concomitant]
     Dates: start: 20101101
  5. PREMARIN [Concomitant]
     Dates: start: 20101101

REACTIONS (1)
  - DYSPNOEA [None]
